FAERS Safety Report 7442159-8 (Version None)
Quarter: 2011Q2

REPORT INFORMATION
  Report Type: 
  Country: None (occurrence: None)
  Receive Date: 20110428
  Receipt Date: 20110425
  Transmission Date: 20111010
  Serious: Yes (Life-Threatening)
  Sender: FDA-Public Use
  Company Number: PHHY2011BR35102

PATIENT
  Sex: Female

DRUGS (2)
  1. CLORANA [Concomitant]
     Dosage: 25 MG, UNK
  2. DIOVAN AMLO FIX [Suspect]
     Dosage: 160 MG VALS AND 5 MG AMLO
     Route: 048

REACTIONS (9)
  - INSOMNIA [None]
  - MENOPAUSE [None]
  - CHEST DISCOMFORT [None]
  - MALAISE [None]
  - FATIGUE [None]
  - FEELING ABNORMAL [None]
  - BLOOD PRESSURE FLUCTUATION [None]
  - HYPERHIDROSIS [None]
  - HEADACHE [None]
